FAERS Safety Report 8076080-1 (Version None)
Quarter: 2012Q1

REPORT INFORMATION
  Report Type: 
  Country: None (occurrence: None)
  Receive Date: 20120127
  Receipt Date: 20110802
  Transmission Date: 20120608
  Serious: No
  Sender: FDA-Public Use
  Company Number: US-GLAXOSMITHKLINE-A0939394A

PATIENT
  Age: 63 Year
  Sex: Male

DRUGS (5)
  1. BUPROPION HYDROCHLORIDE [Suspect]
     Indication: PANIC ATTACK
     Dosage: 150MG TWICE PER DAY
     Route: 048
     Dates: start: 20100101, end: 20110802
  2. ENALAPRIL [Concomitant]
  3. INSULIN [Concomitant]
  4. GEMFIBROZIL [Concomitant]
  5. METFORMIN HCL [Concomitant]

REACTIONS (1)
  - PANIC ATTACK [None]
